FAERS Safety Report 4701460-9 (Version None)
Quarter: 2005Q2

REPORT INFORMATION
  Report Type: 
  Country: None (occurrence: None)
  Receive Date: 20050627
  Receipt Date: 20050622
  Transmission Date: 20051028
  Serious: Yes (Hospitalization, Other)
  Sender: FDA-Public Use
  Company Number: HQWYE343609JUN05

PATIENT
  Age: 84 Year
  Sex: Female

DRUGS (7)
  1. CORDARONE [Suspect]
     Indication: ATRIAL FIBRILLATION
     Dosage: 200 MG 1X PER 1 DAY ORAL
     Route: 048
     Dates: end: 20050507
  2. CORDARONE [Suspect]
     Indication: ATRIAL FLUTTER
     Dosage: 200 MG 1X PER 1 DAY ORAL
     Route: 048
     Dates: end: 20050507
  3. ATARAX [Suspect]
     Route: 048
     Dates: end: 20050507
  4. LESCOL [Suspect]
     Route: 048
     Dates: end: 20050507
  5. SIMVASTATIN [Suspect]
     Route: 048
     Dates: end: 20050507
  6. PREVISCAN (FLUINDIONE) [Suspect]
     Dosage: 20 MG ORAL
     Route: 048
     Dates: end: 20050506
  7. LORAZEPAM [Suspect]
     Route: 048
     Dates: end: 20050507

REACTIONS (5)
  - DRUG INTERACTION [None]
  - FALL [None]
  - INTERNATIONAL NORMALISED RATIO INCREASED [None]
  - LOSS OF CONSCIOUSNESS [None]
  - SUBDURAL HAEMATOMA [None]
